FAERS Safety Report 6707047-0 (Version None)
Quarter: 2010Q2

REPORT INFORMATION
  Report Type: 
  Country: None (occurrence: None)
  Receive Date: 20100503
  Receipt Date: 20100419
  Transmission Date: 20101027
  Serious: Yes (Other)
  Sender: FDA-Public Use
  Company Number: PHEH2006US14743

PATIENT
  Sex: Male
  Weight: 89.342 kg

DRUGS (12)
  1. ZOMETA [Suspect]
     Indication: BONE LESION
     Dosage: 4MG QMO
     Route: 042
     Dates: start: 20051214
  2. AREDIA [Suspect]
  3. DECADRON [Concomitant]
  4. ZOLOFT [Concomitant]
  5. AMBIEN [Concomitant]
  6. COMPAZINE [Concomitant]
  7. THALOMID [Concomitant]
     Indication: MULTIPLE MYELOMA
     Dosage: 200MG QD
  8. HUMULIN R [Concomitant]
     Indication: DIABETES MELLITUS
     Dosage: 3 UNITS WITH EACH MEAL
  9. LANTUS [Concomitant]
  10. LIPITOR [Concomitant]
  11. MIRAPEX [Concomitant]
  12. CARBIDOPA [Concomitant]

REACTIONS (17)
  - ANXIETY [None]
  - BONE DISORDER [None]
  - DECREASED INTEREST [None]
  - DENTAL OPERATION [None]
  - DIZZINESS [None]
  - FALL [None]
  - GAIT DISTURBANCE [None]
  - GENERAL PHYSICAL HEALTH DETERIORATION [None]
  - GINGIVAL PAIN [None]
  - GINGIVAL SWELLING [None]
  - IMPAIRED HEALING [None]
  - OSTEOMYELITIS [None]
  - OSTEONECROSIS [None]
  - PAIN [None]
  - PARKINSON'S DISEASE [None]
  - SYNCOPE [None]
  - TOOTH EXTRACTION [None]
